FAERS Safety Report 10240171 (Version 1)
Quarter: 2014Q2

REPORT INFORMATION
  Report Type: Report from Study
  Country: US (occurrence: US)
  Receive Date: 20140617
  Receipt Date: 20140617
  Transmission Date: 20141212
  Serious: Yes (Death, Hospitalization)
  Sender: FDA-Public Use
  Company Number: US-AMGEN INC.-USACT2014043385

PATIENT
  Age: 27 Year
  Sex: Female

DRUGS (28)
  1. PEGFILGRASTIM [Suspect]
     Indication: ACUTE LYMPHOCYTIC LEUKAEMIA
     Dosage: 6 MG, UNK
     Route: 058
     Dates: start: 20140318, end: 20140318
  2. INOTUZUMAB OZOGAMICIN [Concomitant]
     Indication: ACUTE LYMPHOCYTIC LEUKAEMIA
     Dosage: 1.8 MG/M2, 3 MG, DAY 03, ONCE A DAY, UNK
     Route: 042
     Dates: start: 20140316, end: 20140316
  3. CYCLOPHOSPHAMIDE [Concomitant]
     Indication: ACUTE LYMPHOCYTIC LEUKAEMIA
     Dosage: 249 MG, ON DAY 01, DAILY, UNK
     Route: 042
     Dates: start: 20140314, end: 20140314
  4. CYCLOPHOSPHAMIDE [Concomitant]
     Dosage: 249 MG, DAY 02, DAILY, UNK
     Route: 042
     Dates: start: 20140315, end: 20140315
  5. CYCLOPHOSPHAMIDE [Concomitant]
     Dosage: 249 MG, DAY 03, DAILY, UNK
     Dates: start: 20140316, end: 20140316
  6. MESNA [Concomitant]
     Indication: ACUTE LYMPHOCYTIC LEUKAEMIA
     Dosage: 498 MG, DAY 01, UNK
     Route: 042
     Dates: start: 20140314, end: 20140314
  7. MESNA [Concomitant]
     Dosage: 498 MG, DAY 02, UNK
     Route: 042
     Dates: start: 20140315, end: 20140315
  8. MESNA [Concomitant]
     Dosage: 498 MG, DAY 03, UNK
     Route: 042
     Dates: start: 20140316, end: 20140316
  9. DEXAMETHASONE [Concomitant]
     Indication: ACUTE LYMPHOCYTIC LEUKAEMIA
     Dosage: 20 MG, DAY 01, UNK
     Route: 042
     Dates: start: 20140314, end: 20140314
  10. DEXAMETHASONE [Concomitant]
     Dosage: 20 MG, DAY 02, UNK
     Route: 042
     Dates: start: 20140315, end: 20140315
  11. DEXAMETHASONE [Concomitant]
     Dosage: 20 MG, DAY 03, UNK
     Route: 042
     Dates: start: 20140316, end: 20140316
  12. DEXAMETHASONE [Concomitant]
     Dosage: 20 MG, DAY 04, UNK
     Route: 042
     Dates: start: 20140317, end: 20140317
  13. DEXAMETHASONE [Concomitant]
     Dosage: 20 MG, DAY 11, UNK
     Route: 042
     Dates: start: 20140324, end: 20140324
  14. VINCRISTINE [Concomitant]
     Indication: ACUTE LYMPHOCYTIC LEUKAEMIA
     Dosage: 2 MG, DAY 02, UNK
     Route: 042
     Dates: start: 20140315, end: 20140315
  15. VINCRISTINE [Concomitant]
     Dosage: 2 MG, UNK
     Route: 042
     Dates: start: 20140322, end: 20140322
  16. METHOTREXATE [Concomitant]
     Indication: ACUTE LYMPHOCYTIC LEUKAEMIA
     Dosage: 12 MG, DAY 04, UNK
     Route: 037
     Dates: start: 20140317, end: 20140317
  17. SENNA                              /00142201/ [Concomitant]
     Dosage: UNK
  18. LACTULOSE [Concomitant]
     Dosage: UNK
  19. CEFEPIME [Concomitant]
     Dosage: UNK
  20. HYDROMORPHONE [Concomitant]
     Dosage: UNK
  21. HYDRALAZINE [Concomitant]
     Dosage: UNK
  22. METRONIDAZOLE [Concomitant]
     Dosage: UNK
  23. NALOXONE [Concomitant]
     Dosage: UNK
  24. LINEZOLID [Concomitant]
     Dosage: UNK
  25. HYDROCORTISONE [Concomitant]
     Dosage: UNK
  26. PANTOPRAZOLE [Concomitant]
     Dosage: UNK
  27. ACYCLOVIR                          /00587301/ [Concomitant]
     Dosage: UNK
  28. ESTRADIOL [Concomitant]
     Dosage: UNK

REACTIONS (1)
  - Venoocclusive liver disease [Fatal]
